FAERS Safety Report 9454003 (Version 1)
Quarter: 2013Q3

REPORT INFORMATION
  Report Type: Report from Study
  Country: US (occurrence: US)
  Receive Date: 20130812
  Receipt Date: 20130812
  Transmission Date: 20140515
  Serious: Yes (Hospitalization)
  Sender: FDA-Public Use
  Company Number: US-CUBIST PHARMACEUTICAL, INC.-2013CBST000141

PATIENT
  Age: 51 Year
  Sex: Female
  Weight: 138 kg

DRUGS (3)
  1. DAPTOMYCIN [Suspect]
     Indication: FEBRILE NEUTROPENIA
     Dosage: 2 G, Q8H
     Route: 042
     Dates: start: 20110927, end: 20111003
  2. VANCOMYCIN [Suspect]
     Dosage: 1 UNK, Q12H
     Dates: start: 20110930, end: 20111003
  3. DORYX                              /00055701/ [Concomitant]
     Indication: FEBRILE NEUTROPENIA
     Dosage: 100 MG, Q12H
     Route: 048
     Dates: start: 20110926, end: 20110929

REACTIONS (1)
  - Rash [Unknown]
